FAERS Safety Report 5478975-1 (Version None)
Quarter: 2007Q4

REPORT INFORMATION
  Report Type: 
  Country: None (occurrence: None)
  Receive Date: 20071006
  Receipt Date: 20070925
  Transmission Date: 20080405
  Serious: Yes (Life-Threatening, Hospitalization, Other)
  Sender: FDA-Public Use
  Company Number: JP-PFIZER INC-2007075158

PATIENT
  Sex: Female

DRUGS (4)
  1. ALPRAZOLAM [Suspect]
     Indication: ANXIETY
     Route: 048
     Dates: start: 20070621, end: 20070830
  2. TOLEDOMIN [Interacting]
     Indication: DEPRESSION
     Route: 048
     Dates: start: 20070417, end: 20070830
  3. DOGMATYL [Interacting]
     Indication: ANXIETY
     Route: 048
     Dates: start: 20070417, end: 20070830
  4. ZOLPIDEM [Interacting]
     Indication: INITIAL INSOMNIA
     Route: 048
     Dates: start: 20070417, end: 20070830

REACTIONS (5)
  - ALOPECIA [None]
  - DECREASED APPETITE [None]
  - DRUG INTERACTION [None]
  - HEPATIC FUNCTION ABNORMAL [None]
  - WEIGHT DECREASED [None]
